FAERS Safety Report 6591650-5 (Version None)
Quarter: 2010Q1

REPORT INFORMATION
  Report Type: 
  Country: None (occurrence: None)
  Receive Date: 20100221
  Receipt Date: 20090623
  Transmission Date: 20100710
  Serious: No
  Sender: FDA-Public Use
  Company Number: US-ALLERGAN-0906640US

PATIENT
  Age: 67 Year
  Sex: Female
  Weight: 60.771 kg

DRUGS (3)
  1. BOTOX COSMETIC [Suspect]
     Indication: SKIN WRINKLING
     Dosage: 20 UNITS, SINGLE
     Route: 030
     Dates: start: 20090507, end: 20090507
  2. BOTOX COSMETIC [Suspect]
     Dosage: UNK, SINGLE
     Route: 030
     Dates: start: 20070101, end: 20070101
  3. JUVEDERM [Concomitant]

REACTIONS (4)
  - BLISTER [None]
  - LIP DISCOLOURATION [None]
  - LIP HAEMORRHAGE [None]
  - WRONG DRUG ADMINISTERED [None]
